FAERS Safety Report 19458442 (Version 1)
Quarter: 2021Q2

REPORT INFORMATION
  Report Type: Spontaneous
  Country: AU (occurrence: AU)
  Receive Date: 20210624
  Receipt Date: 20210624
  Transmission Date: 20210717
  Serious: Yes (Life-Threatening, Hospitalization)
  Sender: FDA-Public Use
  Company Number: AU-MYLANLABS-2021M1037246

PATIENT
  Age: 21 Year
  Sex: Female

DRUGS (7)
  1. SODIUM CITRATE. [Suspect]
     Active Substance: SODIUM CITRATE
     Indication: ANAESTHETIC PREMEDICATION
     Dosage: 30 MILLILITER
     Route: 048
  2. DESFLURANE. [Suspect]
     Active Substance: DESFLURANE
     Indication: MAINTENANCE OF ANAESTHESIA
     Dosage: AT LEAST 1 MINIMUM ALVEOLAR CONCENTRATION
     Route: 065
  3. SYNTOCINON [Concomitant]
     Active Substance: OXYTOCIN
     Indication: PRODUCT USED FOR UNKNOWN INDICATION
     Dosage: 5 INTERNATIONAL UNIT
     Route: 040
  4. ROCURONIUM [Suspect]
     Active Substance: ROCURONIUM BROMIDE
     Indication: NEUROMUSCULAR BLOCKING THERAPY
     Dosage: 0.5 MILLIGRAM/KILOGRAMSINGLE DOSE WITH CRICOID PRESSURE
     Route: 065
  5. THIOPENTAL SODIUM. [Suspect]
     Active Substance: THIOPENTAL SODIUM
     Indication: INDUCTION OF ANAESTHESIA
     Dosage: 3 MILLIGRAM/KILOGRAM
     Route: 065
  6. CEPHAZOLIN                         /00288501/ [Concomitant]
     Indication: PRODUCT USED FOR UNKNOWN INDICATION
     Dosage: 2 GRAM
     Route: 040
  7. SYNTOCINON [Concomitant]
     Active Substance: OXYTOCIN
     Dosage: 10IU/H INFUSION

REACTIONS (6)
  - Anaesthetic complication pulmonary [Recovered/Resolved]
  - Maternal exposure during delivery [Recovered/Resolved]
  - Atelectasis [Recovered/Resolved]
  - Normal newborn [Recovered/Resolved]
  - Bronchial secretion retention [Recovered/Resolved]
  - Oxygen saturation decreased [Recovered/Resolved]
